FAERS Safety Report 14392294 (Version 3)
Quarter: 2018Q1

REPORT INFORMATION
  Report Type: Spontaneous
  Country: US (occurrence: US)
  Receive Date: 20180116
  Receipt Date: 20180201
  Transmission Date: 20180509
  Serious: Yes (Other)
  Sender: FDA-Public Use
  Company Number: US-ENDO PHARMACEUTICALS INC-2018-013485

PATIENT
  Sex: Female

DRUGS (2)
  1. PREDNISOLONE ORAL SOLUTION [Suspect]
     Active Substance: PREDNISOLONE
     Indication: URTICARIA
     Dosage: UNK UNKNOWN, UNKNOWN
     Route: 048
  2. LORATADIN [Suspect]
     Active Substance: LORATADINE
     Indication: PRODUCT USED FOR UNKNOWN INDICATION
     Dosage: UNK UNKNOWN, UNKNOWN
     Route: 065

REACTIONS (5)
  - Blood lead increased [Unknown]
  - Poisoning deliberate [Recovering/Resolving]
  - Product contamination [Unknown]
  - Hair metal test [Unknown]
  - Physical assault [Unknown]
